FAERS Safety Report 8191052-4 (Version None)
Quarter: 2012Q1

REPORT INFORMATION
  Report Type: 
  Country: None (occurrence: None)
  Receive Date: 20120221
  Receipt Date: 20111114
  Transmission Date: 20120608
  Serious: No
  Sender: FDA-Public Use
  Company Number: 1000025496

PATIENT
  Age: 65 Year
  Sex: Female

DRUGS (8)
  1. VIIBRYD [Suspect]
     Indication: DEPRESSION
     Dosage: 10 MG 910 MG, 1 IN 1 D), ORAL
     Route: 048
     Dates: start: 20111108
  2. LEVOTHYROXINE SODIUM [Concomitant]
  3. PRAVASTATIN [Concomitant]
  4. ALTACE [Concomitant]
  5. TOVIAZ [Suspect]
     Indication: URINARY INCONTINENCE
     Dosage: 8 MG (8 MG, 1 IN 1 D),
  6. PAXIL [Concomitant]
  7. PROTONIX [Concomitant]
  8. ATIVAN (LORAZEPRAM) [Concomitant]

REACTIONS (1)
  - DIZZINESS [None]
